FAERS Safety Report 9472828 (Version 3)
Quarter: 2014Q2

REPORT INFORMATION
  Report Type: Report from Study
  Country: MX (occurrence: MX)
  Receive Date: 20130823
  Receipt Date: 20140527
  Transmission Date: 20141212
  Serious: Yes (Death, Hospitalization, Other)
  Sender: FDA-Public Use
  Company Number: PHHY2013MX091405

PATIENT
  Age: 89 Year
  Sex: Female

DRUGS (5)
  1. CO-DIOVAN [Suspect]
     Indication: HYPERTENSION
     Dosage: 1 DF (160/12.5MG) DAILY
     Route: 048
     Dates: end: 200808
  2. CO-DIOVAN [Suspect]
     Dosage: 0.5 DF (160/12.5MG) DAILY
     Route: 048
     Dates: start: 200808
  3. ALDACTONE [Concomitant]
     Dosage: 1 UKN, DAILY
  4. ALDACTONE [Concomitant]
     Dosage: 0.5 DF(TABLETS), UNK
  5. LANOXIN [Concomitant]
     Dosage: 1 UKN, DAILY

REACTIONS (5)
  - Cardiac failure [Fatal]
  - Arrhythmia [Recovered/Resolved]
  - Weight decreased [Not Recovered/Not Resolved]
  - Blood sodium decreased [Not Recovered/Not Resolved]
  - Wrong technique in drug usage process [Not Recovered/Not Resolved]
